FAERS Safety Report 8153576-5 (Version None)
Quarter: 2012Q1

REPORT INFORMATION
  Report Type: 
  Country: None (occurrence: None)
  Receive Date: 20120103
  Receipt Date: 20111030
  Transmission Date: 20120608
  Serious: No
  Sender: FDA-Public Use
  Company Number: AE-2011-001073

PATIENT
  Age: 54 Year
  Sex: Male
  Weight: 80.7403 kg

DRUGS (4)
  1. PEGASYS [Concomitant]
  2. INCIVEK [Suspect]
     Dosage: 2250 MG (750 MG,1 IN 8 HR),ORAL
     Route: 048
     Dates: start: 20110806
  3. RIBAVIRIN [Concomitant]
  4. SONATA [Concomitant]

REACTIONS (10)
  - MUSCLE TIGHTNESS [None]
  - DRY MOUTH [None]
  - DYSPNOEA [None]
  - DRY EYE [None]
  - WHITE BLOOD CELL COUNT DECREASED [None]
  - FATIGUE [None]
  - RED BLOOD CELL COUNT DECREASED [None]
  - NAUSEA [None]
  - VISION BLURRED [None]
  - RASH PRURITIC [None]
